FAERS Safety Report 8009522-8 (Version None)
Quarter: 2011Q4

REPORT INFORMATION
  Report Type: 
  Country: None (occurrence: None)
  Receive Date: 20111227
  Receipt Date: 20111220
  Transmission Date: 20120403
  Serious: Yes (Hospitalization, Disabling, Other)
  Sender: FDA-Public Use
  Company Number: US-MERCK-1107USA01267

PATIENT
  Age: 41 Year
  Sex: Female
  Weight: 82 kg

DRUGS (7)
  1. PREDNISONE TAB [Suspect]
     Route: 048
     Dates: start: 19960101
  2. ALENDRONATE SODIUM [Suspect]
     Route: 065
     Dates: start: 20091103, end: 20100728
  3. FOSAMAX [Suspect]
     Indication: OSTEOPOROSIS
     Route: 048
     Dates: start: 20000401, end: 20080101
  4. FOSAMAX [Suspect]
     Route: 048
     Dates: start: 20070327
  5. ALENDRONATE SODIUM [Suspect]
     Route: 048
     Dates: start: 20090622, end: 20091008
  6. ALENDRONATE SODIUM [Suspect]
     Route: 048
     Dates: start: 20100925, end: 20110101
  7. ALENDRONATE SODIUM [Suspect]
     Indication: OSTEOPOROSIS
     Route: 048
     Dates: start: 20080224, end: 20090519

REACTIONS (42)
  - BLINDNESS [None]
  - FALL [None]
  - HEADACHE [None]
  - RHEUMATOID ARTHRITIS [None]
  - EYELID PTOSIS [None]
  - MUSCLE SPASMS [None]
  - INAPPROPRIATE SCHEDULE OF DRUG ADMINISTRATION [None]
  - ANAEMIA [None]
  - GLAUCOMA [None]
  - GAIT DISTURBANCE [None]
  - TINNITUS [None]
  - ANXIETY [None]
  - ARTHRALGIA [None]
  - JOINT DISLOCATION [None]
  - DENTAL CARIES [None]
  - VERTEBRAL FORAMINAL STENOSIS [None]
  - SPONDYLITIS [None]
  - OSTEOARTHRITIS [None]
  - HYPERTENSION [None]
  - GASTROOESOPHAGEAL REFLUX DISEASE [None]
  - LIMB ASYMMETRY [None]
  - ADVERSE DRUG REACTION [None]
  - ARTHRITIS [None]
  - JOINT INJURY [None]
  - EYE DISORDER [None]
  - MUSCLE STRAIN [None]
  - FOOT FRACTURE [None]
  - INTERVERTEBRAL DISC PROTRUSION [None]
  - VITAMIN D DEFICIENCY [None]
  - ASTHENIA [None]
  - PAIN IN EXTREMITY [None]
  - METATARSALGIA [None]
  - ASTHMA [None]
  - MUSCULOSKELETAL CHEST PAIN [None]
  - TYPE 2 DIABETES MELLITUS [None]
  - FEMUR FRACTURE [None]
  - HAEMORRHAGIC ANAEMIA [None]
  - RETINAL DETACHMENT [None]
  - FOOT DEFORMITY [None]
  - VITILIGO [None]
  - POOR QUALITY SLEEP [None]
  - INCREASED TENDENCY TO BRUISE [None]
